FAERS Safety Report 5320578-3 (Version None)
Quarter: 2007Q2

REPORT INFORMATION
  Report Type: 
  Country: None (occurrence: None)
  Receive Date: 20070509
  Receipt Date: 20070502
  Transmission Date: 20071010
  Serious: Yes (Hospitalization)
  Sender: FDA-Public Use
  Company Number: US-GENENTECH-238641

PATIENT
  Sex: Male
  Weight: 64.399 kg

DRUGS (17)
  1. BEVACIZUMAB [Suspect]
     Indication: COLORECTAL CANCER METASTATIC
     Dosage: 330 MG, QOW
     Route: 042
     Dates: start: 20061101, end: 20070313
  2. CETUXIMAB [Suspect]
     Indication: COLORECTAL CANCER METASTATIC
     Dosage: 440 MG, 1/WEEK
     Route: 042
     Dates: start: 20061101, end: 20070313
  3. FLUOROURACIL [Suspect]
     Indication: COLORECTAL CANCER METASTATIC
     Dosage: 704 MG, QOW
     Route: 040
     Dates: start: 20061101, end: 20070313
  4. FLUOROURACIL [Suspect]
     Dosage: 4200 MG, QOW
     Route: 042
     Dates: start: 20061101
  5. LEUCOVORIN CALCIUM [Suspect]
     Indication: COLORECTAL CANCER METASTATIC
     Dosage: 704 MG, QOW
     Route: 042
     Dates: start: 20061101, end: 20070313
  6. FOSAMAX [Concomitant]
     Indication: DRUG USE FOR UNKNOWN INDICATION
  7. ZOCOR [Concomitant]
     Indication: DRUG USE FOR UNKNOWN INDICATION
     Dosage: 40 MG, UNK
  8. ENALAPRIL [Concomitant]
     Indication: DRUG USE FOR UNKNOWN INDICATION
     Dosage: 20 MG, BID
  9. AMARYL [Concomitant]
     Indication: DRUG USE FOR UNKNOWN INDICATION
     Dosage: 4 MG, UNK
  10. TERAZOSIN HCL [Concomitant]
     Indication: DRUG USE FOR UNKNOWN INDICATION
     Dosage: 5 MG, UNK
  11. FUROSEMIDE [Concomitant]
     Indication: DRUG USE FOR UNKNOWN INDICATION
     Dosage: 20 MG, BID
  12. TOPROL-XL [Concomitant]
     Indication: DRUG USE FOR UNKNOWN INDICATION
     Dosage: 50 MG, QD
  13. METFORMIN HCL [Concomitant]
     Indication: DRUG USE FOR UNKNOWN INDICATION
     Dosage: 500 MG, UNK
  14. ASPIRIN [Concomitant]
     Indication: DRUG USE FOR UNKNOWN INDICATION
     Dosage: UNK, QD
  15. REQUIP [Concomitant]
     Indication: DRUG USE FOR UNKNOWN INDICATION
  16. HUMULIN - REG [Concomitant]
     Indication: DRUG USE FOR UNKNOWN INDICATION
  17. IMODIUM [Concomitant]
     Indication: DIARRHOEA

REACTIONS (20)
  - ARTERIOSCLEROSIS [None]
  - ATELECTASIS [None]
  - CAPILLARY LEAK SYNDROME [None]
  - CONGESTIVE CARDIOMYOPATHY [None]
  - DIARRHOEA [None]
  - FLUID OVERLOAD [None]
  - GASTROENTERITIS [None]
  - GENERALISED OEDEMA [None]
  - HAEMATOCRIT DECREASED [None]
  - HEPATIC MASS [None]
  - HYPOKALAEMIA [None]
  - HYPOMAGNESAEMIA [None]
  - LYMPHOCYTE PERCENTAGE DECREASED [None]
  - NAUSEA [None]
  - OEDEMA PERIPHERAL [None]
  - OSTEOPOROSIS [None]
  - PLEURAL EFFUSION [None]
  - PNEUMONIA [None]
  - PULMONARY CONGESTION [None]
  - VOMITING [None]
